FAERS Safety Report 5495341-3 (Version None)
Quarter: 2007Q4

REPORT INFORMATION
  Report Type: 
  Country: None (occurrence: None)
  Receive Date: 20071024
  Receipt Date: 20071018
  Transmission Date: 20080405
  Serious: Yes (Hospitalization)
  Sender: FDA-Public Use
  Company Number: AU-MERCK-0710AUS00142

PATIENT

DRUGS (3)
  1. FOSAMAX PLUS D [Suspect]
     Route: 048
     Dates: end: 20071001
  2. CALCIUM (UNSPECIFIED) [Concomitant]
     Route: 065
  3. [THERAPY UNSPECIFIED] [Concomitant]
     Route: 065

REACTIONS (5)
  - COLITIS [None]
  - ENTERITIS [None]
  - GASTRITIS [None]
  - POST PROCEDURAL COMPLICATION [None]
  - THORACIC VERTEBRAL FRACTURE [None]
